FAERS Safety Report 7391242-4 (Version None)
Quarter: 2011Q2

REPORT INFORMATION
  Report Type: 
  Country: None (occurrence: None)
  Receive Date: 20110404
  Receipt Date: 20110324
  Transmission Date: 20111010
  Serious: Yes (Other)
  Sender: FDA-Public Use
  Company Number: US-US-EMD SERONO, INC.-7050283

PATIENT
  Sex: Female

DRUGS (2)
  1. INSULIN [Concomitant]
     Indication: DIABETES MELLITUS
  2. REBIF [Suspect]
     Indication: MULTIPLE SCLEROSIS
     Route: 058
     Dates: start: 20110302

REACTIONS (4)
  - DEPRESSED LEVEL OF CONSCIOUSNESS [None]
  - MUSCULAR WEAKNESS [None]
  - BLOOD GLUCOSE INCREASED [None]
  - MOVEMENT DISORDER [None]
